FAERS Safety Report 5067943-X (Version None)
Quarter: 2006Q3

REPORT INFORMATION
  Report Type: 
  Country: None (occurrence: None)
  Receive Date: 20060710
  Receipt Date: 20050825
  Transmission Date: 20061208
  Serious: Yes (Hospitalization)
  Sender: FDA-Public Use
  Company Number: US-JNJFOC-20050806395

PATIENT
  Age: 15 Year
  Sex: Female

DRUGS (1)
  1. MOTRIN IB [Suspect]
     Indication: PAIN
     Dosage: 8000 MG, 1 IN 1 TOTAL, ORAL
     Route: 048
     Dates: start: 20050825, end: 20050825

REACTIONS (1)
  - OVERDOSE [None]
